FAERS Safety Report 15889288 (Version 1)
Quarter: 2019Q1

REPORT INFORMATION
  Report Type: Spontaneous
  Country: US (occurrence: US)
  Receive Date: 20190130
  Receipt Date: 20190130
  Transmission Date: 20190417
  Serious: Yes (Hospitalization)
  Sender: FDA-Public Use
  Company Number: None

PATIENT
  Age: 42 Year
  Sex: Male
  Weight: 69.1 kg

DRUGS (1)
  1. VIVITROL [Suspect]
     Active Substance: NALTREXONE
     Indication: DRUG DEPENDENCE
     Dosage: ?          OTHER FREQUENCY:EVERY 4 WEEKS;?
     Route: 030
     Dates: start: 20181001, end: 20181001

REACTIONS (6)
  - Injection site abscess [None]
  - Lactobacillus test positive [None]
  - Drug dependence [None]
  - Endocarditis [None]
  - Injection site swelling [None]
  - Muscle abscess [None]

NARRATIVE: CASE EVENT DATE: 20190111
